FAERS Safety Report 6444917-5 (Version None)
Quarter: 2009Q4

REPORT INFORMATION
  Report Type: 
  Country: None (occurrence: None)
  Receive Date: 20091116
  Receipt Date: 20091116
  Transmission Date: 20100525
  Serious: No
  Sender: FDA-Public Use
  Company Number: None

PATIENT
  Age: 57 Year
  Sex: Female
  Weight: 63.5036 kg

DRUGS (2)
  1. MIACALCIN [Suspect]
     Indication: BONE DENSITY DECREASED
     Dosage: 200 IU (ONE SPRAY) ONCE/DAY NASAL
     Route: 045
     Dates: start: 20091004
  2. MIACALCIN [Suspect]
     Indication: BONE DENSITY DECREASED
     Dosage: 200 IU (ONE SPRAY) ONCE/DAY NASAL
     Route: 045
     Dates: start: 20091006

REACTIONS (3)
  - MEDICATION ERROR [None]
  - MIGRAINE WITH AURA [None]
  - PRODUCT LABEL ISSUE [None]
